FAERS Safety Report 17525031 (Version 2)
Quarter: 2020Q1

REPORT INFORMATION
  Report Type: Spontaneous
  Country: DE (occurrence: DE)
  Receive Date: 20200310
  Receipt Date: 20200320
  Transmission Date: 20200409
  Serious: Yes (Other)
  Sender: FDA-Public Use
  Company Number: DE-BAYER-2020-038641

PATIENT
  Age: 68 Year
  Sex: Male

DRUGS (3)
  1. REGORAFENIB. [Suspect]
     Active Substance: REGORAFENIB
     Indication: ANAPLASTIC OLIGODENDROGLIOMA
     Dosage: 160 MG, QD; FOR 21 OUT OF 28 DAYS
  2. REGORAFENIB. [Suspect]
     Active Substance: REGORAFENIB
     Indication: ANAPLASTIC OLIGODENDROGLIOMA
     Dosage: 160 MG, QD; FOR 21 OUT OF 28 DAYS
  3. REGORAFENIB. [Suspect]
     Active Substance: REGORAFENIB
     Indication: ANAPLASTIC OLIGODENDROGLIOMA
     Dosage: 160 MG, QD; FOR 21 OUT OF 28 DAYS

REACTIONS (5)
  - Aphasia [Recovered/Resolved]
  - Pyrexia [Recovered/Resolved]
  - Headache [Recovered/Resolved]
  - Meningitis aseptic [Recovered/Resolved]
  - Fatigue [Recovered/Resolved]
